FAERS Safety Report 9994782 (Version 1)
Quarter: 2014Q1

REPORT INFORMATION
  Report Type: Spontaneous
  Country: US (occurrence: None)
  Receive Date: 20140306
  Receipt Date: 20140306
  Transmission Date: 20141002
  Serious: Yes (Hospitalization)
  Sender: FDA-Public Use
  Company Number: SYM-2014-18128

PATIENT
  Age: 69 Year
  Sex: Male
  Weight: 60.33 kg

DRUGS (7)
  1. XENAZINE (TETRABENAZINE) (25 MILLIGRAM, TABLET) (TETRABENAZINE) [Suspect]
     Indication: HUNTINGTON^S DISEASE
     Route: 048
     Dates: start: 20090216
  2. VENLAFAXINE (VENLAFAXINE) [Concomitant]
  3. CLONAZEPAM (CLONAZEPAM) [Concomitant]
  4. BUDESONIDE (BUDESONIDE) [Concomitant]
  5. TAMSULOSIN (TAMSULOSIN) [Concomitant]
  6. MIRTAZAPINE (MIRTAZAPINE) [Concomitant]
  7. HYDROXYZINE (HYDROXYZINE) [Concomitant]

REACTIONS (6)
  - Pyrexia [None]
  - Pulmonary congestion [None]
  - Huntington^s disease [None]
  - Condition aggravated [None]
  - Incoherent [None]
  - Pneumothorax [None]
